FAERS Safety Report 11878682 (Version 8)
Quarter: 2016Q4

REPORT INFORMATION
  Report Type: Spontaneous
  Country: TW (occurrence: TW)
  Receive Date: 20151230
  Receipt Date: 20161024
  Transmission Date: 20170206
  Serious: Yes (Hospitalization)
  Sender: FDA-Public Use
  Company Number: TW-PFIZER INC-2015461049

PATIENT
  Age: 88 Year
  Sex: Male

DRUGS (5)
  1. SUTENT [Suspect]
     Active Substance: SUNITINIB MALATE
     Dosage: 37.5 MG, CYCLIC (QD, 2 WEEKS ON AND 1 WEEK OFF)
     Route: 048
     Dates: start: 20151224
  2. SUTENT [Suspect]
     Active Substance: SUNITINIB MALATE
     Dosage: 37.5 MG, QD, 1 WEEK ON AND 1 WEEK OFF
     Route: 048
     Dates: start: 201602
  3. SUTENT [Suspect]
     Active Substance: SUNITINIB MALATE
     Dosage: 25 MG, QD, 1 WEEK ON AND 1 WEEK OFF
     Route: 048
  4. SUTENT [Suspect]
     Active Substance: SUNITINIB MALATE
     Dosage: 25 MG, QD, 1 WEEK ON AND 1 WEEK OFF
     Route: 048
     Dates: end: 20160713
  5. SUTENT [Suspect]
     Active Substance: SUNITINIB MALATE
     Indication: RENAL CELL CARCINOMA
     Dosage: 50 MG, CYCLIC (QD, 2 WEEKS ON AND 1 WEEK OFF)
     Route: 048
     Dates: start: 20151119, end: 20151207

REACTIONS (5)
  - Blood count abnormal [Recovered/Resolved]
  - Diarrhoea [Recovered/Resolved]
  - Dysgeusia [Recovered/Resolved]
  - Pain [Recovered/Resolved]
  - Decreased appetite [Recovered/Resolved]

NARRATIVE: CASE EVENT DATE: 20151207
